FAERS Safety Report 15993155 (Version 1)
Quarter: 2019Q1

REPORT INFORMATION
  Report Type: Spontaneous
  Country: US (occurrence: US)
  Receive Date: 20190221
  Receipt Date: 20190221
  Transmission Date: 20190418
  Serious: No
  Sender: FDA-Public Use
  Company Number: US-TEVA-2019-US-1004250

PATIENT
  Age: 62 Year
  Sex: Male
  Weight: 68 kg

DRUGS (3)
  1. PROAIR HFA [Suspect]
     Active Substance: ALBUTEROL SULFATE
     Indication: WHEEZING
  2. PROAIR HFA [Suspect]
     Active Substance: ALBUTEROL SULFATE
     Indication: ASTHMA
     Dosage: TWO PUFFS, EVERY SIX HOURS AS NEEDED
     Route: 048
  3. ALBUTEROL. [Concomitant]
     Active Substance: ALBUTEROL
     Indication: ASTHMA
     Route: 065

REACTIONS (5)
  - Nasopharyngitis [Unknown]
  - Hypertension [Unknown]
  - Drug ineffective [Unknown]
  - Asthma [Unknown]
  - Extra dose administered [Unknown]

NARRATIVE: CASE EVENT DATE: 201901
